FAERS Safety Report 8533276-X (Version None)
Quarter: 2012Q3

REPORT INFORMATION
  Report Type: 
  Country: None (occurrence: None)
  Receive Date: 20120724
  Receipt Date: 20120713
  Transmission Date: 20120928
  Serious: Yes (Hospitalization, Other)
  Sender: FDA-Public Use
  Company Number: JP-VERTEX PHARMACEUTICALS INC.-AE-2012-005588

PATIENT
  Age: 60 Year
  Sex: Male

DRUGS (13)
  1. TELAVIC (TELAPREVIR) [Suspect]
     Indication: HEPATITIS C
     Route: 048
     Dates: start: 20120222, end: 20120224
  2. BERIZYM [Concomitant]
     Route: 048
     Dates: start: 20120309
  3. REBETOL [Concomitant]
     Route: 048
     Dates: start: 20120412
  4. FELTASE [Concomitant]
     Route: 048
     Dates: start: 20120314
  5. TELAVIC (TELAPREVIR) [Suspect]
     Route: 048
     Dates: start: 20120225
  6. REBETOL [Concomitant]
     Route: 048
     Dates: start: 20120222, end: 20120301
  7. PEG-INTRON [Concomitant]
     Route: 051
     Dates: start: 20120222
  8. OLMESARTAN MEDOXOMIL [Concomitant]
     Route: 048
     Dates: start: 20120222
  9. ACETAMINOPHEN [Concomitant]
     Route: 048
     Dates: start: 20120222
  10. REBETOL [Concomitant]
     Route: 048
     Dates: start: 20120302, end: 20120411
  11. ALLEGRA [Concomitant]
     Route: 048
     Dates: start: 20120227
  12. ALLOPURINOL [Concomitant]
     Route: 048
     Dates: start: 20120224
  13. CLARITIN [Concomitant]
     Route: 048
     Dates: start: 20120227

REACTIONS (6)
  - PLATELET COUNT DECREASED [None]
  - HYPERURICAEMIA [None]
  - ANAEMIA [None]
  - NEUTROPHIL COUNT DECREASED [None]
  - RENAL DISORDER [None]
  - AMYLASE INCREASED [None]
